FAERS Safety Report 9999136 (Version 1)
Quarter: 2014Q1

REPORT INFORMATION
  Report Type: Spontaneous
  Country: QA (occurrence: None)
  Receive Date: 20140310
  Receipt Date: 20140310
  Transmission Date: 20141002
  Serious: Yes (Other)
  Sender: FDA-Public Use
  Company Number: 2211836

PATIENT
  Age: 53 Year
  Sex: Male

DRUGS (4)
  1. BLEOMYCIN SULFATE [Suspect]
     Indication: SEMINOMA
  2. CISPLATIN [Suspect]
     Indication: SEMINOMA
  3. CLOZAPINE [Suspect]
     Indication: SCHIZOPHRENIA, PARANOID TYPE
  4. ETOPOSIDE [Suspect]
     Indication: SEMINOMA

REACTIONS (3)
  - Neutropenia [None]
  - Seminoma [None]
  - Leukopenia [None]
